FAERS Safety Report 8338583-1 (Version None)
Quarter: 2012Q2

REPORT INFORMATION
  Report Type: 
  Country: None (occurrence: None)
  Receive Date: 20120504
  Receipt Date: 20120427
  Transmission Date: 20120825
  Serious: Yes (Other)
  Sender: FDA-Public Use
  Company Number: US-ABBOTT-12P-163-0931196-00

PATIENT
  Sex: Male
  Weight: 88.984 kg

DRUGS (7)
  1. CELEBREX [Concomitant]
     Indication: RHEUMATOID ARTHRITIS
  2. HUMIRA [Suspect]
     Indication: RHEUMATOID ARTHRITIS
     Dates: start: 20080101, end: 20120201
  3. SIMVASTATIN [Concomitant]
     Indication: BLOOD CHOLESTEROL INCREASED
  4. METHOTREXATE [Concomitant]
     Indication: RHEUMATOID ARTHRITIS
  5. FOLIC ACID [Concomitant]
     Indication: VITAMIN SUPPLEMENTATION
  6. POTASSIUM CHLORIDE [Concomitant]
     Indication: MINERAL SUPPLEMENTATION
  7. ACETAMINOPHEN [Concomitant]
     Indication: RHEUMATOID ARTHRITIS

REACTIONS (4)
  - NON-HODGKIN'S LYMPHOMA [None]
  - LYMPHADENOPATHY [None]
  - MALAISE [None]
  - HAEMOGLOBIN DECREASED [None]
